FAERS Safety Report 9171193 (Version 1)
Quarter: 2013Q1

REPORT INFORMATION
  Report Type: Spontaneous
  Country: US (occurrence: US)
  Receive Date: 20130319
  Receipt Date: 20130319
  Transmission Date: 20140127
  Serious: Yes (Other)
  Sender: FDA-Public Use
  Company Number: PHEH2013US003545

PATIENT
  Age: 43 Year
  Sex: Female

DRUGS (1)
  1. TEGRETOL [Suspect]
     Indication: EPILEPSY
     Dosage: UNK

REACTIONS (5)
  - Multiple sclerosis [Unknown]
  - Dizziness [Unknown]
  - Convulsion [Unknown]
  - Exposure during pregnancy [Unknown]
  - Drug dependence [Unknown]
